FAERS Safety Report 18004728 (Version 5)
Quarter: 2021Q2

REPORT INFORMATION
  Report Type: Spontaneous
  Country: CA (occurrence: CA)
  Receive Date: 20200709
  Receipt Date: 20210628
  Transmission Date: 20210717
  Serious: Yes (Other)
  Sender: FDA-Public Use
  Company Number: CA-TEVA-2020-CA-1799591

PATIENT
  Sex: Male

DRUGS (2)
  1. ALLERGAN [Concomitant]
     Active Substance: PAPAIN
  2. TEVA?LEVOCARBIDOPA [Suspect]
     Active Substance: CARBIDOPA\LEVODOPA
     Indication: PARKINSON^S DISEASE
     Dosage: 3?4 TABLETS THRICE DAILY
     Route: 065
     Dates: start: 201704, end: 201705

REACTIONS (4)
  - Product packaging issue [Unknown]
  - Vision blurred [Unknown]
  - Glaucoma [Unknown]
  - Drug effect less than expected [Unknown]

NARRATIVE: CASE EVENT DATE: 2017
